FAERS Safety Report 8844691 (Version 2)
Quarter: 2013Q1

REPORT INFORMATION
  Report Type: Spontaneous
  Country: US (occurrence: None)
  Receive Date: 20121012
  Receipt Date: 20121025
  Transmission Date: 20140127
  Serious: Yes (Hospitalization, Other)
  Sender: FDA-Public Use
  Company Number: 2011-000063

PATIENT
  Age: 64 Year
  Sex: Female
  Weight: 81.8 kg

DRUGS (11)
  1. ACTONEL [Suspect]
     Indication: OSTEOPOROSIS
     Route: 048
     Dates: start: 20080929, end: 20100610
  2. FOSAMAX (ALENDRONATE SODIUM) [Suspect]
     Indication: OSTEOPOROSIS
     Route: 048
     Dates: start: 2001
  3. ALENDRONATE SODIUM [Suspect]
     Indication: OSTEOPOROSIS
     Route: 048
     Dates: start: 20080602, end: 20080929
  4. MICARDIS HCT (HYDROCHLOROTHIAZIDE, TELMISARTAN) [Concomitant]
  5. ZOLPIDEM (ZOLPIDEM) [Concomitant]
  6. ASPIRIN (ACETYLSALICYLIC ACID) [Concomitant]
  7. MULTIVITAMIN (VITAMIN NOS) [Concomitant]
  8. CALCIUM + VITAMIN D (CALCIUM CARBONATE, COLECALCIFEROL) [Concomitant]
  9. OMEGA 3 (FISH OIL) [Concomitant]
  10. VITAMIN B12 /00056201/(CYANOCOBALAMIN) [Concomitant]
  11. GLUCOSAMINE HYDROCHLORIDE (GLUCOSAMINE HYDROCHLORIDE) [Concomitant]

REACTIONS (12)
  - Femur fracture [None]
  - Fall [None]
  - Complication of device insertion [None]
  - Arthralgia [None]
  - Low turnover osteopathy [None]
  - Skeletal injury [None]
  - Bursitis [None]
  - Bone graft [None]
  - Enchondroma [None]
  - Vertigo [None]
  - Arthralgia [None]
  - Plantar fasciitis [None]
